FAERS Safety Report 8406696-1 (Version None)
Quarter: 2012Q2

REPORT INFORMATION
  Report Type: 
  Country: None (occurrence: None)
  Receive Date: 20120604
  Receipt Date: 20120525
  Transmission Date: 20120825
  Serious: Yes (Hospitalization)
  Sender: FDA-Public Use
  Company Number: NL-ASTELLAS-2012US005045

PATIENT
  Sex: Female
  Weight: 65 kg

DRUGS (3)
  1. GDC-0941 [Suspect]
     Indication: NON-SMALL CELL LUNG CANCER
     Dosage: 340 DF, UID/QD
     Route: 048
     Dates: end: 20120504
  2. ERLOTINIB HYDROCHLORIDE [Suspect]
     Indication: NON-SMALL CELL LUNG CANCER
     Dosage: 100 MG, UID/QD
     Route: 048
     Dates: end: 20120504
  3. GDC-0941 [Suspect]
     Dosage: 340 DF, UID/QD
     Route: 048

REACTIONS (6)
  - SKIN TOXICITY [None]
  - INCORRECT DOSE ADMINISTERED [None]
  - CANDIDIASIS [None]
  - FACE OEDEMA [None]
  - PYREXIA [None]
  - RASH [None]
